FAERS Safety Report 8566022 (Version 4)
Quarter: 2013Q1

REPORT INFORMATION
  Report Type: Spontaneous
  Country: SE (occurrence: SE)
  Receive Date: 20120516
  Receipt Date: 20130307
  Transmission Date: 20140127
  Serious: Yes (Hospitalization, Other)
  Sender: FDA-Public Use
  Company Number: SE-BIOGENIDEC-2012BI016750

PATIENT
  Age: 43 Year
  Sex: Male

DRUGS (2)
  1. TYSABRI [Suspect]
     Indication: RELAPSING-REMITTING MULTIPLE SCLEROSIS
     Route: 042
     Dates: start: 20081204, end: 20120418
  2. AMPYRA [Concomitant]
     Dates: start: 20101231, end: 20110518

REACTIONS (6)
  - Progressive multifocal leukoencephalopathy [Not Recovered/Not Resolved]
  - Faecal incontinence [Unknown]
  - Urinary incontinence [Unknown]
  - Immune reconstitution inflammatory syndrome [Unknown]
  - Muscle spasticity [Unknown]
  - Pain in extremity [Unknown]
